FAERS Safety Report 14998978 (Version 1)
Quarter: 2018Q2

REPORT INFORMATION
  Report Type: Spontaneous
  Country: FR (occurrence: FR)
  Receive Date: 20180612
  Receipt Date: 20180612
  Transmission Date: 20180711
  Serious: Yes (Hospitalization)
  Sender: FDA-Public Use
  Company Number: FR-TEVA-2018-FR-904616

PATIENT
  Age: 88 Year
  Sex: Male

DRUGS (2)
  1. ALLOPURINOL. [Suspect]
     Active Substance: ALLOPURINOL
     Indication: PRODUCT USED FOR UNKNOWN INDICATION
     Dosage: 100 MILLIGRAM DAILY;
     Route: 048
     Dates: end: 20180221
  2. PREVISCAN 20 MG, SCORED TABLET [Interacting]
     Active Substance: FLUINDIONE
     Indication: CARDIOMYOPATHY
     Dosage: 10 MILLIGRAM DAILY;
     Route: 048
     Dates: start: 201206, end: 20180221

REACTIONS (2)
  - Drug interaction [Recovered/Resolved with Sequelae]
  - Haemorrhagic stroke [Recovered/Resolved with Sequelae]

NARRATIVE: CASE EVENT DATE: 20180221
